FAERS Safety Report 5729589-7 (Version None)
Quarter: 2008Q2

REPORT INFORMATION
  Report Type: 
  Country: None (occurrence: None)
  Receive Date: 20080506
  Receipt Date: 20080429
  Transmission Date: 20081010
  Serious: Yes (Hospitalization, Other)
  Sender: FDA-Public Use
  Company Number: US-MERCK-0705USA02832

PATIENT
  Age: 45 Year
  Sex: Female
  Weight: 68 kg

DRUGS (2)
  1. FOSAMAX [Suspect]
     Indication: OSTEOPOROSIS
     Route: 048
     Dates: start: 20040601, end: 20060101
  2. CORTICOSTEROIDS (UNSPECIFIED) [Concomitant]
     Route: 065
     Dates: start: 20010101, end: 20060101

REACTIONS (13)
  - ANXIETY [None]
  - ARTICULAR DISC DISORDER [None]
  - DEPRESSION [None]
  - FACIAL PAIN [None]
  - GASTROINTESTINAL DISORDER [None]
  - INFECTION [None]
  - NASAL DISCOMFORT [None]
  - NEURALGIA [None]
  - OSTEONECROSIS [None]
  - PAIN [None]
  - SINUS DISORDER [None]
  - SINUS HEADACHE [None]
  - UTERINE DISORDER [None]
